FAERS Safety Report 14573511 (Version 4)
Quarter: 2018Q2

REPORT INFORMATION
  Report Type: Spontaneous
  Country: US (occurrence: US)
  Receive Date: 20180226
  Receipt Date: 20180418
  Transmission Date: 20180711
  Serious: Yes (Hospitalization, Other)
  Sender: FDA-Public Use
  Company Number: US-MYLANLABS-2018M1012038

PATIENT
  Age: 70 Year
  Sex: Female
  Weight: 70 kg

DRUGS (2)
  1. CARBIDOPA AND LEVODOPA [Suspect]
     Active Substance: CARBIDOPA\LEVODOPA
     Indication: PARKINSON^S DISEASE
     Dosage: 250 MG, Q4D
     Route: 048
     Dates: start: 20180115
  2. CARBIDOPA AND LEVODOPA [Suspect]
     Active Substance: CARBIDOPA\LEVODOPA
     Dosage: 100 MG, UNK
     Dates: start: 20180215

REACTIONS (11)
  - Mental impairment [Not Recovered/Not Resolved]
  - Pain in extremity [Unknown]
  - Conversion disorder [Unknown]
  - Screaming [Recovered/Resolved]
  - Depression [Not Recovered/Not Resolved]
  - Drug effect incomplete [Not Recovered/Not Resolved]
  - Anxiety [Not Recovered/Not Resolved]
  - Movement disorder [Not Recovered/Not Resolved]
  - Communication disorder [Recovering/Resolving]
  - Substance-induced psychotic disorder [Recovering/Resolving]
  - Incorrect dose administered [Unknown]

NARRATIVE: CASE EVENT DATE: 20180110
